FAERS Safety Report 8084861-3 (Version None)
Quarter: 2012Q1

REPORT INFORMATION
  Report Type: 
  Country: None (occurrence: None)
  Receive Date: 20120128
  Receipt Date: 20110318
  Transmission Date: 20120608
  Serious: No
  Sender: FDA-Public Use
  Company Number: US-ABBOTT-11P-163-0712673-00

PATIENT
  Sex: Male
  Weight: 99.88 kg

DRUGS (3)
  1. HYDROCHLOROTHIAZIDE [Concomitant]
     Indication: HYPERTENSION
  2. HUMIRA [Suspect]
     Indication: CROHN'S DISEASE
     Route: 058
     Dates: start: 20080101
  3. ATENOLOL [Concomitant]
     Indication: HYPERTENSION

REACTIONS (4)
  - ABDOMINAL DISCOMFORT [None]
  - FLATULENCE [None]
  - CROHN'S DISEASE [None]
  - FLANK PAIN [None]
